FAERS Safety Report 24282590 (Version 1)
Quarter: 2024Q3

REPORT INFORMATION
  Report Type: Spontaneous
  Country: US (occurrence: None)
  Receive Date: 20240902
  Receipt Date: 20240902
  Transmission Date: 20241017
  Serious: Yes (Other)
  Sender: Public
  Company Number: None

PATIENT
  Age: 47 Year
  Sex: Male
  Weight: 60.75 kg

DRUGS (2)
  1. BENZALKONIUM [Suspect]
     Active Substance: BENZALKONIUM
  2. BENZALKONIUM CHLORIDE\DEVICE [Suspect]
     Active Substance: BENZALKONIUM CHLORIDE\DEVICE
     Indication: Injury
     Dosage: TRANSDERMAL
     Route: 062
     Dates: start: 20240831, end: 20240831

REACTIONS (6)
  - Burning sensation [None]
  - Arthralgia [None]
  - Wound complication [None]
  - Blister [None]
  - Skin irritation [None]
  - Rash [None]

NARRATIVE: CASE EVENT DATE: 20240831
